FAERS Safety Report 16249133 (Version 1)
Quarter: 2019Q2

REPORT INFORMATION
  Report Type: Spontaneous
  Country: FR (occurrence: FR)
  Receive Date: 20190429
  Receipt Date: 20190429
  Transmission Date: 20190711
  Serious: Yes (Life-Threatening)
  Sender: FDA-Public Use
  Company Number: FR-ACCORD-124739

PATIENT
  Age: 86 Year
  Sex: Male
  Weight: 73 kg

DRUGS (11)
  1. EDUCTYL [Concomitant]
     Active Substance: POTASSIUM BITARTRATE\SODIUM BICARBONATE
     Route: 065
  2. MIRTAZAPINE. [Suspect]
     Active Substance: MIRTAZAPINE
     Indication: PRODUCT USED FOR UNKNOWN INDICATION
     Dosage: THE EVENING
     Route: 048
  3. XATRAL [Concomitant]
     Active Substance: ALFUZOSIN
     Dosage: DOSE NOT CHANGED
     Route: 048
  4. MOVICOL [Concomitant]
     Active Substance: POLYETHYLENE GLYCOL 3350\POTASSIUM CHLORIDE\SODIUM BICARBONATE\SODIUM CHLORIDE
     Dosage: LE MATIN, DOSE NOT CHANGED
     Route: 048
  5. CLOZAPINE. [Suspect]
     Active Substance: CLOZAPINE
     Indication: AGGRESSION
     Dosage: SEE COMMENT
     Route: 048
     Dates: start: 20181127, end: 20190122
  6. LOXAPAC [Suspect]
     Active Substance: LOXAPINE
     Indication: AGGRESSION
     Dosage: AVANT LES SOINS
     Route: 048
  7. DULCILARMES [Concomitant]
     Dosage: DOSE NOT CHANGED
     Route: 047
  8. ELIQUIS [Concomitant]
     Active Substance: APIXABAN
     Dosage: DOSE NOT CHANGED
     Route: 048
  9. NORMACOL [Concomitant]
     Active Substance: HERBALS\KARAYA GUM
     Route: 048
  10. SERESTA [Suspect]
     Active Substance: OXAZEPAM
     Indication: PRODUCT USED FOR UNKNOWN INDICATION
     Dosage: AND IF AGITATION
     Route: 048
  11. IMOVANE [Concomitant]
     Active Substance: ZOPICLONE
     Dosage: LE SOIR, DOSE NOT CHANGED
     Route: 048

REACTIONS (3)
  - Syncope [Recovered/Resolved]
  - Malaise [Recovered/Resolved]
  - Circulatory collapse [Recovered/Resolved]

NARRATIVE: CASE EVENT DATE: 20190122
